FAERS Safety Report 9801014 (Version 5)
Quarter: 2015Q2

REPORT INFORMATION
  Report Type: Spontaneous
  Country: US (occurrence: US)
  Receive Date: 20140107
  Receipt Date: 20150622
  Transmission Date: 20150821
  Serious: Yes (Death, Hospitalization, Disabling)
  Sender: FDA-Public Use
  Company Number: US-BAYER-2013-158759

PATIENT
  Age: 41 Year
  Sex: Female
  Weight: 93.42 kg

DRUGS (11)
  1. ZOFRAN [Concomitant]
     Active Substance: ONDANSETRON HYDROCHLORIDE
     Indication: NAUSEA
     Dosage: UNK
     Dates: start: 20111226
  2. MIRENA [Suspect]
     Active Substance: LEVONORGESTREL
     Indication: CONTRACEPTION
     Dosage: 20 MCG/24HR, CONT
     Route: 015
     Dates: start: 20110107, end: 20111226
  3. ZOSYN [Concomitant]
     Active Substance: PIPERACILLIN SODIUM\TAZOBACTAM SODIUM
     Indication: STAPHYLOCOCCAL INFECTION
     Dosage: UNK
     Dates: start: 20111226
  4. ZITHROMAX [Concomitant]
     Active Substance: AZITHROMYCIN DIHYDRATE
     Dosage: UNK
     Dates: start: 20111115
  5. ROCEPHIN [Concomitant]
     Active Substance: CEFTRIAXONE SODIUM
     Dosage: 1 G, UNK
     Dates: start: 20111226
  6. KAYEXALATE [Concomitant]
     Active Substance: SODIUM POLYSTYRENE SULFONATE
     Dosage: UNK
     Dates: start: 20111226
  7. CLINDAMYCIN [Concomitant]
     Active Substance: CLINDAMYCIN\CLINDAMYCIN PHOSPHATE
     Indication: STAPHYLOCOCCAL INFECTION
     Dosage: 600 MG, UNK
     Dates: start: 20111226
  8. LEVOPHED [Concomitant]
     Active Substance: NOREPINEPHRINE BITARTRATE
     Dosage: UNK
     Dates: start: 20111226
  9. AMPICILLIN [Concomitant]
     Active Substance: AMPICILLIN
     Dosage: 1 G, UNK
     Route: 042
     Dates: start: 20111226
  10. INSULIN [Concomitant]
     Active Substance: INSULIN NOS
     Dosage: UNK
     Dates: start: 20111226
  11. VANCOMYCIN [Concomitant]
     Active Substance: VANCOMYCIN
     Indication: STAPHYLOCOCCAL INFECTION
     Dosage: UNK
     Dates: start: 20111226

REACTIONS (22)
  - Pelvic inflammatory disease [Fatal]
  - Injury [Fatal]
  - Diarrhoea [Fatal]
  - Visual impairment [None]
  - Abdominal pain [Fatal]
  - Cardio-respiratory arrest [Fatal]
  - Pelvic abscess [Fatal]
  - Pyrexia [Fatal]
  - Abdominal tenderness [Fatal]
  - Rash [None]
  - Nervous system disorder [None]
  - Medical device complication [None]
  - Vomiting [Fatal]
  - Discomfort [Fatal]
  - Pain [Fatal]
  - Multi-organ failure [Fatal]
  - Beta haemolytic streptococcal infection [Fatal]
  - Pelvic sepsis [Fatal]
  - Nausea [Fatal]
  - Toxic shock syndrome [Fatal]
  - Headache [None]
  - Fatigue [Fatal]

NARRATIVE: CASE EVENT DATE: 201112
